FAERS Safety Report 8315448-2 (Version None)
Quarter: 2012Q2

REPORT INFORMATION
  Report Type: 
  Country: None (occurrence: None)
  Receive Date: 20120426
  Receipt Date: 20120417
  Transmission Date: 20120825
  Serious: Yes (Other)
  Sender: FDA-Public Use
  Company Number: IT-ABBOTT-11P-083-0852076-01

PATIENT
  Sex: Male

DRUGS (5)
  1. AZATHIOPRINE [Concomitant]
     Indication: CROHN'S DISEASE
     Dosage: DURATION:  7 YRS
  2. HUMIRA [Suspect]
     Route: 058
     Dates: end: 20100603
  3. HUMIRA [Suspect]
     Route: 058
  4. HUMIRA [Suspect]
     Indication: CROHN'S DISEASE
     Dosage: INDUCTION
     Route: 058
     Dates: start: 20090907, end: 20090907
  5. METHOTREXATE [Concomitant]
     Indication: CROHN'S DISEASE
     Dates: start: 20100923

REACTIONS (1)
  - COLON CANCER [None]
